FAERS Safety Report 10615080 (Version 1)
Quarter: 2014Q4

REPORT INFORMATION
  Report Type: Other
  Country: DE (occurrence: DE)
  Receive Date: 20141201
  Receipt Date: 20141201
  Transmission Date: 20150529
  Serious: Yes (Other)
  Sender: FDA-Public Use
  Company Number: DE-LUPIN PHARMACEUTICALS INC.-E2B_00002806

PATIENT
  Age: 0 Year
  Sex: Female
  Weight: 2.78 kg

DRUGS (14)
  1. LAMOTRIGINE. [Suspect]
     Active Substance: LAMOTRIGINE
     Indication: EPILEPSY
     Dosage: 150 MG/DAY
     Route: 064
     Dates: start: 20131111
  2. ACETYLSALICYLIC ACID [Concomitant]
     Active Substance: ASPIRIN
     Indication: PROPHYLAXIS OF ABORTION
     Route: 064
     Dates: start: 20131111, end: 20140815
  3. DEKRISTOL 20000 I.E. [Concomitant]
     Indication: VITAMIN D DEFICIENCY
     Dosage: 20000 I.E. PER WEEK
     Route: 064
     Dates: start: 20131118, end: 20140815
  4. FRAXIPARIN [Concomitant]
     Active Substance: NADROPARIN CALCIUM
     Indication: PROPHYLAXIS OF ABORTION
     Route: 064
     Dates: start: 20131201, end: 20140812
  5. LEVOTHYROXINE SODIUM. [Concomitant]
     Active Substance: LEVOTHYROXINE SODIUM
     Indication: HYPOTHYROIDISM
     Route: 064
     Dates: start: 20131111, end: 20140815
  6. SUMATRIPTAN. [Concomitant]
     Active Substance: SUMATRIPTAN
     Dosage: ONCE DURING THE 3RD TRIMESTER
     Route: 064
  7. LAMOTRIGINE. [Suspect]
     Active Substance: LAMOTRIGINE
     Dosage: 175 MG/DAY
     Route: 064
     Dates: end: 20140815
  8. CALCIUM [Concomitant]
     Active Substance: CALCIUM
     Indication: CALCIUM DEFICIENCY
     Route: 064
     Dates: start: 20131118, end: 20140815
  9. FSME-IMMUN [Concomitant]
     Indication: IMMUNISATION
     Dosage: 3RD VACCINE SHOT
     Route: 064
     Dates: start: 20140414, end: 20140414
  10. CITALOPRAM [Suspect]
     Active Substance: CITALOPRAM HYDROBROMIDE
     Indication: DEPRESSION
     Route: 064
     Dates: start: 20131118, end: 20140815
  11. SUMATRIPTAN. [Concomitant]
     Active Substance: SUMATRIPTAN
     Indication: MIGRAINE
     Dosage: TWICE DURING THE 1ST TRIMESTER
     Route: 064
  12. ENGERIX B [Concomitant]
     Indication: IMMUNISATION
     Route: 064
     Dates: start: 20131127, end: 20131127
  13. PROGESTERON [Concomitant]
     Indication: PROPHYLAXIS OF ABORTION
     Route: 064
     Dates: start: 20131118, end: 20140815
  14. FOLSAN 5 MG VON ABBOTT [Concomitant]
     Indication: PROPHYLAXIS OF NEURAL TUBE DEFECT
     Route: 064
     Dates: start: 20131118, end: 20140815

REACTIONS (3)
  - Agitation neonatal [Recovered/Resolved]
  - Foetal exposure during pregnancy [Unknown]
  - Respiratory disorder neonatal [Recovered/Resolved]

NARRATIVE: CASE EVENT DATE: 20131118
